FAERS Safety Report 21745748 (Version 2)
Quarter: 2023Q2

REPORT INFORMATION
  Report Type: Report from Study
  Country: US (occurrence: US)
  Receive Date: 20221219
  Receipt Date: 20230607
  Transmission Date: 20230721
  Serious: Yes (Other)
  Sender: FDA-Public Use
  Company Number: US-ABBVIE-4240797

PATIENT
  Sex: Female

DRUGS (2)
  1. HUMIRA [Suspect]
     Active Substance: ADALIMUMAB
     Indication: Psoriasis
     Route: 058
  2. HUMIRA [Suspect]
     Active Substance: ADALIMUMAB
     Route: 058

REACTIONS (8)
  - Loss of consciousness [Unknown]
  - Skin exfoliation [Unknown]
  - Arrhythmia [Unknown]
  - Onycholysis [Unknown]
  - Hand fracture [Unknown]
  - Fall [Unknown]
  - Hypertension [Unknown]
  - Positive airway pressure therapy [Unknown]
